FAERS Safety Report 12247948 (Version 2)
Quarter: 2016Q2

REPORT INFORMATION
  Report Type: Spontaneous
  Country: US (occurrence: US)
  Receive Date: 20160408
  Receipt Date: 20160418
  Transmission Date: 20160815
  Serious: No
  Sender: FDA-Public Use
  Company Number: US-TEVA-629453USA

PATIENT
  Sex: Female

DRUGS (9)
  1. SUCRALFATE. [Concomitant]
     Active Substance: SUCRALFATE
  2. FIORICET [Concomitant]
     Active Substance: ACETAMINOPHEN\BUTALBITAL\CAFFEINE
  3. IBUPROFEN. [Concomitant]
     Active Substance: IBUPROFEN
  4. PAROXETINE. [Concomitant]
     Active Substance: PAROXETINE
  5. ZECUITY [Suspect]
     Active Substance: SUMATRIPTAN SUCCINATE
     Indication: MIGRAINE
     Route: 062
     Dates: start: 201601, end: 201601
  6. PERCOCET [Concomitant]
     Active Substance: ACETAMINOPHEN\OXYCODONE HYDROCHLORIDE
  7. NEXPLANON [Concomitant]
     Active Substance: ETONOGESTREL
  8. SUMATRIPTAN. [Concomitant]
     Active Substance: SUMATRIPTAN
     Indication: MIGRAINE
  9. ZOFRAN [Concomitant]
     Active Substance: ONDANSETRON HYDROCHLORIDE

REACTIONS (3)
  - Dry skin [Unknown]
  - Application site erythema [Recovered/Resolved with Sequelae]
  - Skin discolouration [Recovering/Resolving]
